FAERS Safety Report 4937081-2 (Version None)
Quarter: 2006Q1

REPORT INFORMATION
  Report Type: 
  Country: None (occurrence: None)
  Receive Date: 20060307
  Receipt Date: 20060307
  Transmission Date: 20060701
  Serious: Yes (Hospitalization)
  Sender: FDA-Public Use
  Company Number: None

PATIENT
  Age: 76 Year
  Sex: Male
  Weight: 68.0396 kg

DRUGS (11)
  1. LASIX [Suspect]
     Dosage: CHRONIC
  2. MUCINEX [Concomitant]
  3. COMBIVENT [Concomitant]
  4. SPIRIVA [Concomitant]
  5. ADVAIR DISKUS 100/50 [Concomitant]
  6. COUMADIN [Concomitant]
  7. SINGULAIR [Concomitant]
  8. DIGOXIN [Concomitant]
  9. LORAZEPAM [Concomitant]
  10. FLOMAX [Concomitant]
  11. MEXILITINE [Concomitant]

REACTIONS (6)
  - ASTHENIA [None]
  - BLOOD POTASSIUM DECREASED [None]
  - DIZZINESS [None]
  - DYSPNOEA [None]
  - SYNCOPE [None]
  - VENTRICULAR TACHYCARDIA [None]
